FAERS Safety Report 22362503 (Version 1)
Quarter: 2023Q2

REPORT INFORMATION
  Report Type: Spontaneous
  Country: GB (occurrence: GB)
  Receive Date: 20230524
  Receipt Date: 20230524
  Transmission Date: 20230722
  Serious: Yes (Other)
  Sender: FDA-Public Use
  Company Number: GB-NORGINE LIMITED-NOR202301869

PATIENT
  Sex: Male

DRUGS (1)
  1. PLENVU [Suspect]
     Active Substance: ASCORBIC ACID\POLYETHYLENE GLYCOL 3350\POTASSIUM CHLORIDE\SODIUM ASCORBATE\SODIUM CHLORIDE\SODIUM SU
     Indication: Bowel preparation
     Route: 065
     Dates: start: 202305

REACTIONS (7)
  - Altered state of consciousness [Unknown]
  - Swelling face [Unknown]
  - Coordination abnormal [Unknown]
  - Limb discomfort [Unknown]
  - Gastrointestinal sounds abnormal [Unknown]
  - Decreased activity [Unknown]
  - Hangover [Unknown]

NARRATIVE: CASE EVENT DATE: 20230514
